FAERS Safety Report 23678887 (Version 1)
Quarter: 2024Q1

REPORT INFORMATION
  Report Type: Spontaneous
  Country: US (occurrence: None)
  Receive Date: 20240326
  Receipt Date: 20240326
  Transmission Date: 20240410
  Serious: Yes (Hospitalization, Disabling, Other)
  Sender: FDA-Public Use
  Company Number: None

PATIENT
  Age: 23 Year
  Sex: Female
  Weight: 101.15 kg

DRUGS (1)
  1. EMGALITY [Suspect]
     Active Substance: GALCANEZUMAB-GNLM

REACTIONS (5)
  - Drug ineffective [None]
  - Impaired gastric emptying [None]
  - Glucose tolerance impaired [None]
  - Anxiety [None]
  - Adverse drug reaction [None]

NARRATIVE: CASE EVENT DATE: 20240215
